FAERS Safety Report 7824971-6 (Version None)
Quarter: 2011Q4

REPORT INFORMATION
  Report Type: 
  Country: None (occurrence: None)
  Receive Date: 20111019
  Receipt Date: 20110321
  Transmission Date: 20120403
  Serious: No
  Sender: FDA-Public Use
  Company Number: US-BRISTOL-MYERS SQUIBB COMPANY-15621873

PATIENT
  Age: 83 Year
  Sex: Male
  Weight: 64 kg

DRUGS (1)
  1. AVALIDE [Suspect]
     Dosage: 1DF= AVALIDE  150/12.5 MG, HE HAS BEEN SPLITTING THE TABLET FOR ABOUT 2 YEARS

REACTIONS (2)
  - RESPIRATORY RATE INCREASED [None]
  - HEART RATE INCREASED [None]
